FAERS Safety Report 7625907-3 (Version None)
Quarter: 2011Q3

REPORT INFORMATION
  Report Type: 
  Country: None (occurrence: None)
  Receive Date: 20110721
  Receipt Date: 20110721
  Transmission Date: 20111222
  Serious: Yes (Hospitalization)
  Sender: FDA-Public Use
  Company Number: None

PATIENT
  Age: 45 Year
  Sex: Male

DRUGS (1)
  1. TRAZODONE HCL [Suspect]
     Dosage: 100MG
     Route: 048

REACTIONS (3)
  - PRIAPISM [None]
  - PENIS DISORDER [None]
  - PENILE NECROSIS [None]
